FAERS Safety Report 16267899 (Version 2)
Quarter: 2019Q2

REPORT INFORMATION
  Report Type: Report from Study
  Country: None (occurrence: CA)
  Receive Date: 20190503
  Receipt Date: 20190527
  Transmission Date: 20190711
  Serious: Yes (Other)
  Sender: FDA-Public Use
  Company Number: CA-ABBVIE-19K-028-2764676-00

PATIENT
  Age: 74 Year
  Sex: Female
  Weight: 127 kg

DRUGS (3)
  1. HUMIRA [Suspect]
     Active Substance: ADALIMUMAB
     Indication: PSORIASIS
     Route: 058
     Dates: start: 20190305
  2. VITAMIN B5 [Concomitant]
     Active Substance: PANTOTHENIC ACID
     Indication: OSTEOARTHRITIS
  3. VITAMIN C [Concomitant]
     Active Substance: ASCORBIC ACID
     Indication: OSTEOARTHRITIS

REACTIONS (10)
  - Arthritis [Not Recovered/Not Resolved]
  - Hypotension [Not Recovered/Not Resolved]
  - Post inflammatory pigmentation change [Unknown]
  - Feeling abnormal [Not Recovered/Not Resolved]
  - Heart rate abnormal [Not Recovered/Not Resolved]
  - Blood creatine abnormal [Unknown]
  - Dizziness [Not Recovered/Not Resolved]
  - Tinnitus [Not Recovered/Not Resolved]
  - Renal impairment [Not Recovered/Not Resolved]
  - Gamma-glutamyltransferase increased [Unknown]

NARRATIVE: CASE EVENT DATE: 2019
